FAERS Safety Report 10642676 (Version 2)
Quarter: 2015Q3

REPORT INFORMATION
  Report Type: Spontaneous
  Country: US (occurrence: US)
  Receive Date: 20141210
  Receipt Date: 20150804
  Transmission Date: 20151125
  Serious: Yes (Hospitalization)
  Sender: FDA-Public Use
  Company Number: US-BAUSCH-BL-2014-007531

PATIENT
  Sex: Female

DRUGS (2)
  1. XENAZINE [Suspect]
     Active Substance: TETRABENAZINE
     Route: 048
     Dates: start: 201409, end: 201501
  2. XENAZINE [Suspect]
     Active Substance: TETRABENAZINE
     Indication: HUNTINGTON^S DISEASE
     Route: 048
     Dates: start: 20140919

REACTIONS (16)
  - Unresponsive to stimuli [Unknown]
  - Language disorder [Unknown]
  - Restlessness [Unknown]
  - Abnormal behaviour [Unknown]
  - Pollakiuria [Unknown]
  - Anxiety [Unknown]
  - Incoherent [Unknown]
  - Balance disorder [Unknown]
  - Fatigue [Unknown]
  - Diarrhoea [Recovered/Resolved]
  - Feeling abnormal [Unknown]
  - Gait disturbance [Unknown]
  - Confusional state [Unknown]
  - Condition aggravated [Recovering/Resolving]
  - Mood altered [Unknown]
  - Aggression [Recovering/Resolving]

NARRATIVE: CASE EVENT DATE: 2014
